FAERS Safety Report 15533954 (Version 7)
Quarter: 2019Q2

REPORT INFORMATION
  Report Type: Spontaneous
  Country: US (occurrence: US)
  Receive Date: 20181019
  Receipt Date: 20190624
  Transmission Date: 20190711
  Serious: No
  Sender: FDA-Public Use
  Company Number: US-PFIZER INC-2018217832

PATIENT
  Age: 67 Year
  Sex: Female

DRUGS (8)
  1. OXAPROZIN. [Suspect]
     Active Substance: OXAPROZIN
     Dosage: UNK
  2. NAPROXEN. [Suspect]
     Active Substance: NAPROXEN
     Dosage: UNK
  3. NABUMETONE. [Suspect]
     Active Substance: NABUMETONE
     Dosage: UNK
  4. ENBREL [Suspect]
     Active Substance: ETANERCEPT
     Dosage: UNK
  5. CELEBREX [Suspect]
     Active Substance: CELECOXIB
     Dosage: UNK
  6. CELECOXIB. [Suspect]
     Active Substance: CELECOXIB
     Dosage: UNK
  7. ORENCIA [Suspect]
     Active Substance: ABATACEPT
     Dosage: UNK
  8. HUMIRA [Suspect]
     Active Substance: ADALIMUMAB
     Dosage: UNK

REACTIONS (1)
  - Drug hypersensitivity [Unknown]
